FAERS Safety Report 14178863 (Version 1)
Quarter: 2017Q4

REPORT INFORMATION
  Report Type: Spontaneous
  Country: US (occurrence: US)
  Receive Date: 20171110
  Receipt Date: 20171110
  Transmission Date: 20180321
  Serious: Yes (Hospitalization, Other)
  Sender: FDA-Public Use
  Company Number: US-NOVOPROD-571421

PATIENT
  Age: 21 Year
  Sex: Male
  Weight: 56.95 kg

DRUGS (5)
  1. LANTUS [Concomitant]
     Active Substance: INSULIN GLARGINE
     Indication: PRODUCT USED FOR UNKNOWN INDICATION
     Dosage: UNK
     Route: 058
  2. NOVOLOG [Suspect]
     Active Substance: INSULIN ASPART
     Dosage: 20 U, SINGLE
     Route: 058
     Dates: start: 20131225, end: 20131225
  3. NOVOLOG [Suspect]
     Active Substance: INSULIN ASPART
     Indication: CYSTIC FIBROSIS RELATED DIABETES
     Dosage: SLIDING SCALE
     Route: 058
  4. TOBRAMYCIN. [Suspect]
     Active Substance: TOBRAMYCIN
     Indication: CYSTIC FIBROSIS
     Dosage: 112 MG, BID
     Route: 055
     Dates: start: 20131120
  5. LANTUS [Concomitant]
     Active Substance: INSULIN GLARGINE
     Dosage: 10 U, QD (AT NIGHT)
     Route: 058

REACTIONS (6)
  - Hyperglycaemic unconsciousness [Unknown]
  - Syncope [Recovered/Resolved]
  - Infective pulmonary exacerbation of cystic fibrosis [Recovered/Resolved]
  - Hypoglycaemia [Recovered/Resolved]
  - Glycosylated haemoglobin increased [Unknown]
  - Infective pulmonary exacerbation of cystic fibrosis [Not Recovered/Not Resolved]

NARRATIVE: CASE EVENT DATE: 20131225
